FAERS Safety Report 9994742 (Version 1)
Quarter: 2014Q1

REPORT INFORMATION
  Report Type: Spontaneous
  Country: US (occurrence: None)
  Receive Date: 20140307
  Receipt Date: 20140307
  Transmission Date: 20141002
  Serious: Yes (Hospitalization)
  Sender: FDA-Public Use
  Company Number: None

PATIENT
  Age: 65 Year
  Sex: Female
  Weight: 82.6 kg

DRUGS (22)
  1. BELATACEPT (NULOJIX-BMS) [Suspect]
     Indication: RENAL TRANSPLANT
     Route: 042
     Dates: start: 20131207
  2. CELLCEPT [Suspect]
     Indication: RENAL TRANSPLANT
     Route: 048
     Dates: start: 20131207
  3. ALEMTUZUMAB [Concomitant]
  4. BELATACEPT [Concomitant]
  5. METHYLPREDNISONE [Concomitant]
  6. VALGANCICLOVIR [Concomitant]
  7. ZOLOFT [Concomitant]
  8. FRAVACHOL [Concomitant]
  9. OXYCODONE [Concomitant]
  10. DAPSONE [Concomitant]
  11. MYCELEX [Concomitant]
  12. COREG [Concomitant]
  13. CALCITROL [Concomitant]
  14. ASPIRIN [Concomitant]
  15. NORVASC [Concomitant]
  16. AMIODARONE [Concomitant]
  17. VITAMIN D [Concomitant]
  18. NOVOLOG [Concomitant]
  19. LANTUS [Concomitant]
  20. NEURONTIN [Concomitant]
  21. LASIX [Concomitant]
  22. FOLIC ACID [Concomitant]

REACTIONS (8)
  - Nausea [None]
  - Vomiting [None]
  - Abdominal pain [None]
  - Diarrhoea [None]
  - Food poisoning [None]
  - Drug intolerance [None]
  - Urinary tract infection [None]
  - Dehydration [None]
